FAERS Safety Report 24337311 (Version 1)
Quarter: 2024Q3

REPORT INFORMATION
  Report Type: Spontaneous
  Country: IT (occurrence: IT)
  Receive Date: 20240919
  Receipt Date: 20240919
  Transmission Date: 20241017
  Serious: Yes (Other)
  Sender: AUROBINDO
  Company Number: IT-MINISAL02-1001391

PATIENT
  Age: 47 Year
  Sex: Male

DRUGS (1)
  1. OXALIPLATIN [Suspect]
     Active Substance: OXALIPLATIN
     Indication: Rectal cancer stage IV
     Dosage: 140 MILLIGRAM (140 MG OGNI DUE SETTIMANE)
     Route: 042
     Dates: start: 20240424, end: 20240830

REACTIONS (1)
  - Sensitisation [Recovered/Resolved]

NARRATIVE: CASE EVENT DATE: 20240816
